FAERS Safety Report 6568761-3 (Version None)
Quarter: 2010Q1

REPORT INFORMATION
  Report Type: 
  Country: None (occurrence: None)
  Receive Date: 20100203
  Receipt Date: 20100120
  Transmission Date: 20100710
  Serious: Yes (Hospitalization)
  Sender: FDA-Public Use
  Company Number: US-ROCHE-677231

PATIENT
  Sex: Female
  Weight: 76.7 kg

DRUGS (19)
  1. BEVACIZUMAB [Suspect]
     Dosage: CYCLE1, DAY 1, FREQUENCY: Q21 DAYS X 6CYCLES
     Route: 042
     Dates: start: 20091019
  2. CARBOPLATIN [Suspect]
     Indication: ENDOMETRIAL CANCER
     Dosage: DOSE: 5 AUC, CYCLE1, DAY 1, FREQUENCY: Q21 DAYS X 6CYCLES
     Route: 042
     Dates: start: 20091019
  3. PACLITAXEL [Suspect]
     Indication: ENDOMETRIAL CANCER
     Dosage: CYCLE1, DAY 1, FREQUENCY: Q21 DAYS X 6CYCLES
     Route: 042
     Dates: start: 20091019
  4. AMLODIPINE [Concomitant]
     Dosage: DRUG: AMLIDOPINE
  5. ATENOLOL [Concomitant]
  6. ATENOLOL [Concomitant]
  7. ASPIRIN [Concomitant]
  8. PERCOCET [Concomitant]
  9. PERCOCET [Concomitant]
     Dosage: DOSE : 1 TABLET Q 4 H
  10. REGLAN [Concomitant]
     Dosage: FREQUENCY: THRICE PER DAY POST CHEMOTHERAPY AND PRN
     Route: 048
  11. REGLAN [Concomitant]
     Dosage: FREQUENCY REPORTED AS Q AM.
     Route: 048
  12. REGLAN [Concomitant]
     Dosage: 1 MG AT BEDTIME
     Route: 048
  13. DECADRON [Concomitant]
     Dosage: FREQUENCY: TWICE DAILY FOR 3 DAYS POST CHEMOTHERAPY
     Route: 048
  14. ATIVAN [Concomitant]
     Dosage: FREQUENCY: AS NECESSARY, PER 6 HRS
     Route: 048
  15. POTASSIUM [Concomitant]
  16. IBUPROFEN [Concomitant]
     Dosage: FREQUENCY: PER 6 HRS AND PRN
  17. GABAPENTIN [Concomitant]
     Dosage: FREQUENCY REPORTED AS Q 8 H
     Route: 048
  18. COLACE [Concomitant]
     Route: 048
  19. SENNA [Concomitant]
     Dosage: 8.6 Q 12 HOUR
     Route: 048

REACTIONS (9)
  - ABDOMINAL PAIN UPPER [None]
  - CONSTIPATION [None]
  - COUGH [None]
  - DYSPNOEA [None]
  - NAUSEA [None]
  - PAIN [None]
  - PAIN IN EXTREMITY [None]
  - RESPIRATORY TRACT CONGESTION [None]
  - VOMITING [None]
